FAERS Safety Report 9866880 (Version 1)
Quarter: 2014Q1

REPORT INFORMATION
  Report Type: Spontaneous
  Country: US (occurrence: None)
  Receive Date: 20140203
  Receipt Date: 20140203
  Transmission Date: 20141002
  Serious: Yes (Other)
  Sender: FDA-Public Use
  Company Number: None

PATIENT
  Age: 20 Year
  Sex: Female
  Weight: 53.52 kg

DRUGS (1)
  1. DEPO PROVERA [Suspect]
     Dosage: INTO THE MUSCLE
     Route: 030
     Dates: start: 20131224

REACTIONS (2)
  - Muscle disorder [None]
  - Gait disturbance [None]
